FAERS Safety Report 6920923-9 (Version None)
Quarter: 2010Q3

REPORT INFORMATION
  Report Type: 
  Country: None (occurrence: None)
  Receive Date: 20100812
  Receipt Date: 20100802
  Transmission Date: 20110219
  Serious: Yes (Hospitalization)
  Sender: FDA-Public Use
  Company Number: US-CELGENEUS-163-20785-10062007

PATIENT
  Sex: Female

DRUGS (29)
  1. THALOMID [Suspect]
     Indication: MULTIPLE MYELOMA
     Route: 048
     Dates: start: 20091223, end: 20100301
  2. DECADRON [Suspect]
     Indication: MULTIPLE MYELOMA
     Route: 065
  3. VELCADE [Suspect]
     Indication: MULTIPLE MYELOMA
     Route: 051
     Dates: start: 20091117, end: 20100114
  4. VELCADE [Suspect]
     Route: 051
     Dates: end: 20100301
  5. SYNTHROID [Concomitant]
     Indication: PRODUCT USED FOR UNKNOWN INDICATION
     Route: 065
  6. VICODIN [Concomitant]
     Indication: PRODUCT USED FOR UNKNOWN INDICATION
     Route: 065
  7. ZOLOFT [Concomitant]
     Indication: PRODUCT USED FOR UNKNOWN INDICATION
     Route: 065
  8. ACYCLOVIR [Concomitant]
     Indication: PRODUCT USED FOR UNKNOWN INDICATION
     Route: 065
  9. ALBUTEROL [Concomitant]
     Indication: PRODUCT USED FOR UNKNOWN INDICATION
     Route: 065
  10. ASPIRIN [Concomitant]
     Indication: PRODUCT USED FOR UNKNOWN INDICATION
     Route: 065
  11. ADVAIR DISKUS 100/50 [Concomitant]
     Indication: PRODUCT USED FOR UNKNOWN INDICATION
     Route: 065
  12. COREG [Concomitant]
     Indication: PRODUCT USED FOR UNKNOWN INDICATION
     Route: 065
  13. PROCHLORPERAZINE [Concomitant]
     Indication: PRODUCT USED FOR UNKNOWN INDICATION
     Route: 065
  14. CRESTOR [Concomitant]
     Indication: PRODUCT USED FOR UNKNOWN INDICATION
     Route: 065
  15. COLACE [Concomitant]
     Indication: PRODUCT USED FOR UNKNOWN INDICATION
     Route: 065
  16. POTASSIUM CHLORIDE [Concomitant]
     Indication: PRODUCT USED FOR UNKNOWN INDICATION
     Route: 065
  17. LORATADINE [Concomitant]
     Indication: PRODUCT USED FOR UNKNOWN INDICATION
     Route: 065
  18. OMEPRAZOLE [Concomitant]
     Indication: PRODUCT USED FOR UNKNOWN INDICATION
     Route: 065
  19. PERCOCET [Concomitant]
     Indication: PRODUCT USED FOR UNKNOWN INDICATION
     Route: 065
  20. NEUPOGEN [Concomitant]
     Indication: PRODUCT USED FOR UNKNOWN INDICATION
     Route: 065
  21. ZOFRAN [Concomitant]
     Indication: PRODUCT USED FOR UNKNOWN INDICATION
     Route: 065
  22. ANTIEMETICS [Concomitant]
     Indication: PRODUCT USED FOR UNKNOWN INDICATION
     Route: 065
  23. FOLIC ACID [Concomitant]
     Indication: PRODUCT USED FOR UNKNOWN INDICATION
     Route: 065
  24. DULCOLAX [Concomitant]
     Route: 065
  25. DURAGESIC-100 [Concomitant]
     Indication: PRODUCT USED FOR UNKNOWN INDICATION
     Route: 062
  26. DURAGESIC-100 [Concomitant]
     Route: 062
  27. CIPROFLOXACIN [Concomitant]
     Indication: PROPHYLAXIS
     Route: 048
  28. LOVENOX [Concomitant]
     Route: 065
  29. LASIX [Concomitant]
     Indication: PRODUCT USED FOR UNKNOWN INDICATION
     Route: 048

REACTIONS (7)
  - ASTHENIA [None]
  - BACK PAIN [None]
  - DEHYDRATION [None]
  - DIARRHOEA [None]
  - NAUSEA [None]
  - NEUROPATHY PERIPHERAL [None]
  - VOMITING [None]
